FAERS Safety Report 14597392 (Version 1)
Quarter: 2018Q1

REPORT INFORMATION
  Report Type: Spontaneous
  Country: JP (occurrence: JP)
  Receive Date: 20180305
  Receipt Date: 20180305
  Transmission Date: 20180509
  Serious: Yes (Hospitalization)
  Sender: FDA-Public Use
  Company Number: JP-ORION CORPORATION ORION PHARMA-ENTC2018-0076

PATIENT
  Age: 67 Year
  Sex: Male

DRUGS (11)
  1. PRONON [Concomitant]
     Active Substance: PROPAFENONE
     Route: 065
  2. STALEVO [Suspect]
     Active Substance: CARBIDOPA\ENTACAPONE\LEVODOPA
     Dosage: STRENGTH- 50/5/100 MG
     Route: 048
     Dates: start: 201603, end: 201606
  3. STALEVO [Suspect]
     Active Substance: CARBIDOPA\ENTACAPONE\LEVODOPA
     Indication: PARKINSON^S DISEASE
     Dosage: STRENGTH- 50/5/100 MG
     Route: 048
     Dates: start: 201511, end: 201603
  4. LANDEL [Concomitant]
     Active Substance: UNSPECIFIED INGREDIENT
     Route: 065
  5. TRICHLORMETHIAZIDE [Concomitant]
     Active Substance: TRICHLORMETHIAZIDE
     Route: 065
  6. ARTANE [Concomitant]
     Active Substance: TRIHEXYPHENIDYL HYDROCHLORIDE
     Route: 065
  7. MAINTATE [Concomitant]
     Active Substance: BISOPROLOL FUMARATE
     Route: 065
  8. TAKEPRON [Concomitant]
     Active Substance: LANSOPRAZOLE
     Route: 065
  9. MICARDIS [Concomitant]
     Active Substance: TELMISARTAN
     Route: 065
  10. XARELTO [Concomitant]
     Active Substance: RIVAROXABAN
     Route: 065
  11. STALEVO [Suspect]
     Active Substance: CARBIDOPA\ENTACAPONE\LEVODOPA
     Dosage: STRENGTH- 50/5/100 MG
     Route: 048
     Dates: start: 201606

REACTIONS (4)
  - Rhabdomyolysis [Not Recovered/Not Resolved]
  - Muscle rigidity [Unknown]
  - Dehydration [Unknown]
  - Blood creatine phosphokinase abnormal [Unknown]
